FAERS Safety Report 7680576-1 (Version None)
Quarter: 2011Q3

REPORT INFORMATION
  Report Type: 
  Country: None (occurrence: None)
  Receive Date: 20110812
  Receipt Date: 20110809
  Transmission Date: 20111222
  Serious: Yes (Other)
  Sender: FDA-Public Use
  Company Number: US-PFIZER INC-2011144013

PATIENT
  Sex: Female

DRUGS (2)
  1. DEPAKOTE [Concomitant]
     Dosage: UNK
  2. RELPAX [Suspect]
     Dosage: UNK

REACTIONS (2)
  - SLEEP APNOEA SYNDROME [None]
  - MIGRAINE [None]
